FAERS Safety Report 18668552 (Version 1)
Quarter: 2020Q4

REPORT INFORMATION
  Report Type: Spontaneous
  Country: US (occurrence: US)
  Receive Date: 20201225
  Receipt Date: 20201225
  Transmission Date: 20210114
  Serious: Yes (Other)
  Sender: FDA-Public Use
  Company Number: None

PATIENT
  Age: 14 Year
  Sex: Male

DRUGS (1)
  1. OFLOXACIN. [Suspect]
     Active Substance: OFLOXACIN
     Indication: EYE DISORDER

REACTIONS (8)
  - Dry eye [None]
  - Eye pain [None]
  - Drug dispensed to wrong patient [None]
  - Wrong patient received product [None]
  - Eye pruritus [None]
  - Abnormal sensation in eye [None]
  - Photophobia [None]
  - Ocular hyperaemia [None]
